FAERS Safety Report 7775756-0 (Version None)
Quarter: 2011Q3

REPORT INFORMATION
  Report Type: 
  Country: None (occurrence: None)
  Receive Date: 20110923
  Receipt Date: 20110914
  Transmission Date: 20111222
  Serious: Yes (Other)
  Sender: FDA-Public Use
  Company Number: US-ELI_LILLY_AND_COMPANY-US201109004528

PATIENT
  Sex: Female

DRUGS (6)
  1. METOPROLOL SUCCINATE [Concomitant]
     Dosage: 25 MG, BID
  2. EFFIENT [Suspect]
     Indication: STENT PLACEMENT
     Dosage: 10 MG, QD
     Dates: start: 20101020
  3. LOSARTAN POTASSIUM [Concomitant]
     Dosage: 100 MG, QD
  4. LIPITOR [Concomitant]
     Dosage: 80 MG, QD
  5. ASPIRIN [Concomitant]
     Dosage: 81 MG, UNKNOWN
  6. METOPROLOL SUCCINATE [Concomitant]
     Dosage: 12.5 MG, BID

REACTIONS (2)
  - WRIST FRACTURE [None]
  - CORONARY ARTERIAL STENT INSERTION [None]
